FAERS Safety Report 9129811 (Version 2)
Quarter: 2013Q3

REPORT INFORMATION
  Report Type: Report from Study
  Country: RU (occurrence: RU)
  Receive Date: 20130125
  Receipt Date: 20130819
  Transmission Date: 20140515
  Serious: Yes (Death, Life-Threatening, Hospitalization)
  Sender: FDA-Public Use
  Company Number: RU-BRISTOL-MYERS SQUIBB COMPANY-17297714

PATIENT
  Age: 43 Year
  Sex: Female

DRUGS (3)
  1. CISPLATIN [Suspect]
     Indication: METASTATIC GASTRIC CANCER
     Route: 041
     Dates: start: 20121121, end: 20121219
  2. TEGAFUR + GIMERACIL + OTERACIL POTASSIUM [Suspect]
     Indication: METASTATIC GASTRIC CANCER
     Route: 048
     Dates: start: 20121121, end: 20130108
  3. TRAMADOL [Concomitant]
     Indication: ABDOMINAL PAIN UPPER
     Dates: start: 20121115

REACTIONS (1)
  - Cerebral haemorrhage [Fatal]
